FAERS Safety Report 10600402 (Version 1)
Quarter: 2014Q4

REPORT INFORMATION
  Report Type: Spontaneous
  Country: CA (occurrence: CA)
  Receive Date: 20141124
  Receipt Date: 20141124
  Transmission Date: 20150529
  Serious: Yes (Hospitalization)
  Sender: FDA-Public Use
  Company Number: CA-AMGEN-CANSP2014090366

PATIENT
  Age: 56 Year
  Sex: Male
  Weight: 59.8 kg

DRUGS (9)
  1. CETIRIZINE [Concomitant]
     Active Substance: CETIRIZINE HYDROCHLORIDE
     Dosage: UNK
  2. M-ESLON [Concomitant]
     Active Substance: MORPHINE SULFATE
     Dosage: UNK, EXTENDED RELEASE
  3. ENBREL [Suspect]
     Active Substance: ETANERCEPT
     Indication: PRODUCT USED FOR UNKNOWN INDICATION
     Dosage: 50 MG, QWK FOR 23 DAYS
     Route: 058
  4. MS IR [Concomitant]
     Active Substance: MORPHINE SULFATE
     Dosage: UNK
  5. HABITROL                           /01033301/ [Concomitant]
     Dosage: UNK
  6. PMS-LEFLUNOMIDE [Suspect]
     Active Substance: LEFLUNOMIDE
     Indication: PRODUCT USED FOR UNKNOWN INDICATION
     Dosage: 10 MG, QD FOR 34 DAYS
     Route: 048
  7. GABAPENTIN. [Concomitant]
     Active Substance: GABAPENTIN
     Dosage: UNK
  8. AMITRIPTYLINE [Concomitant]
     Active Substance: AMITRIPTYLINE
     Dosage: UNK
  9. DICLOFENAC [Concomitant]
     Active Substance: DICLOFENAC
     Dosage: UNK

REACTIONS (2)
  - Erythema multiforme [Recovered/Resolved]
  - Blister [Recovered/Resolved]
